FAERS Safety Report 8226901-4 (Version None)
Quarter: 2012Q1

REPORT INFORMATION
  Report Type: 
  Country: None (occurrence: None)
  Receive Date: 20120322
  Receipt Date: 20120313
  Transmission Date: 20120608
  Serious: Yes (Hospitalization)
  Sender: FDA-Public Use
  Company Number: US-BAYER-2011-080038

PATIENT
  Age: 26 Year
  Sex: Female
  Weight: 104.31 kg

DRUGS (6)
  1. SUDAFED 12 HOUR [Concomitant]
     Indication: SINUSITIS
     Route: 048
  2. ANALGESIC/CODEINE/CAF [Concomitant]
  3. YAZ [Suspect]
     Indication: OVARIAN CYST
  4. LEVAQUIN [Concomitant]
     Indication: SINUSITIS
     Route: 048
  5. YAZ [Suspect]
     Indication: PREMENSTRUAL SYNDROME
     Dosage: UNK
     Dates: start: 20060101, end: 20090101
  6. PRENATAL VITAMINS [VIT C,B5,B12,D2,B3,B6,RETINOL PALMIT,B2,B1 MONO [Concomitant]

REACTIONS (7)
  - HEADACHE [None]
  - PAIN [None]
  - INTRACRANIAL VENOUS SINUS THROMBOSIS [None]
  - ANXIETY [None]
  - GENERAL PHYSICAL HEALTH DETERIORATION [None]
  - EMOTIONAL DISTRESS [None]
  - INJURY [None]
